FAERS Safety Report 16392636 (Version 2)
Quarter: 2019Q2

REPORT INFORMATION
  Report Type: Spontaneous
  Country: None (occurrence: CN)
  Receive Date: 20190605
  Receipt Date: 20190613
  Transmission Date: 20190711
  Serious: Yes (Hospitalization)
  Sender: FDA-Public Use
  Company Number: CN-JIANGSU HENGRUI MEDICINE CO., LTD.-2067799

PATIENT
  Age: 54 Year
  Sex: Male

DRUGS (15)
  1. LOW MOLECULAR WEIGHT HEPARIN SODIUM [Concomitant]
     Active Substance: HEPARIN SODIUM
     Dates: start: 20190515
  2. SODIUM CHLORIDE. [Concomitant]
     Active Substance: SODIUM CHLORIDE
     Dates: start: 20190515
  3. MORPHINE [Concomitant]
     Active Substance: MORPHINE
  4. GLUCOSE [Concomitant]
     Active Substance: DEXTROSE
     Dates: start: 20190515
  5. DOCETAXEL INJECTION USP, 20 MG/0.5 ML, SINGLE-DOSE VIAL, TWO-VIAL FORM [Suspect]
     Active Substance: DOCETAXEL
     Indication: OESOPHAGEAL SQUAMOUS CELL CARCINOMA
     Route: 041
     Dates: start: 20181124, end: 20190318
  6. OXYCODONE [Concomitant]
     Active Substance: OXYCODONE
  7. INSULIN [Concomitant]
     Active Substance: INSULIN NOS
     Dates: start: 20190515
  8. OMEPRAZOLE. [Concomitant]
     Active Substance: OMEPRAZOLE
     Dates: start: 20190515
  9. MOSAPRIDE [Concomitant]
     Active Substance: MOSAPRIDE
     Dates: start: 20190515
  10. AMINO ACID [Concomitant]
     Active Substance: AMINO ACIDS
     Dates: start: 20190515
  11. CISPLATIN. [Concomitant]
     Active Substance: CISPLATIN
     Dates: start: 20181124, end: 20181124
  12. ENTERAL NUTRITIONAL [Concomitant]
  13. POTASSIUM CHLORIDE. [Concomitant]
     Active Substance: POTASSIUM CHLORIDE
     Dates: start: 20190515
  14. RALTITREXED [Concomitant]
     Active Substance: RALTITREXED
     Dates: start: 20190417, end: 20190417
  15. NEDAPLATIN [Concomitant]
     Active Substance: NEDAPLATIN
     Dates: start: 20190418, end: 20190418

REACTIONS (5)
  - Drug eruption [Recovering/Resolving]
  - Blood pressure increased [Recovering/Resolving]
  - Hypoproteinaemia [Recovered/Resolved]
  - Anaemia [Recovered/Resolved]
  - Product use in unapproved indication [Unknown]

NARRATIVE: CASE EVENT DATE: 20190517
